FAERS Safety Report 7630824-9 (Version None)
Quarter: 2011Q3

REPORT INFORMATION
  Report Type: 
  Country: None (occurrence: None)
  Receive Date: 20110723
  Receipt Date: 20110718
  Transmission Date: 20111222
  Serious: Yes (Other)
  Sender: FDA-Public Use
  Company Number: CA-ABBOTT-11P-028-0840998-00

PATIENT
  Sex: Female
  Weight: 111.23 kg

DRUGS (7)
  1. LOMOTIL [Concomitant]
     Indication: CROHN'S DISEASE
     Dosage: 2 - 4 TIMES PER DAY AS NEEDED
     Route: 048
     Dates: start: 19910101
  2. TYLENOL-500 [Concomitant]
     Indication: PAIN
     Dates: start: 20100101
  3. IMURAN [Concomitant]
     Indication: CROHN'S DISEASE
     Route: 048
     Dates: start: 20090101
  4. QUESTRAM [Concomitant]
     Indication: INTESTINAL RESECTION
     Route: 048
     Dates: start: 19910101
  5. HUMIRA [Suspect]
     Indication: CROHN'S DISEASE
     Route: 058
     Dates: start: 20100519, end: 20110501
  6. OMEPRAZOLE [Concomitant]
     Indication: DYSPEPSIA
     Route: 048
     Dates: start: 20010101
  7. TRAZODONE HCL [Concomitant]
     Indication: PAIN
     Route: 048
     Dates: start: 20100101

REACTIONS (5)
  - BLOOD POTASSIUM DECREASED [None]
  - HAEMOGLOBIN DECREASED [None]
  - MUSCLE SPASMS [None]
  - HYPERTENSION [None]
  - NEURALGIA [None]
